FAERS Safety Report 7593865-6 (Version None)
Quarter: 2011Q3

REPORT INFORMATION
  Report Type: 
  Country: None (occurrence: None)
  Receive Date: 20110706
  Receipt Date: 20110630
  Transmission Date: 20111222
  Serious: Yes (Death)
  Sender: FDA-Public Use
  Company Number: PHHY2011DE38319

PATIENT
  Age: 80 Year
  Sex: Female

DRUGS (4)
  1. GLEEVEC [Suspect]
     Indication: GASTROINTESTINAL STROMAL TUMOUR
     Dosage: 400 MG, DAILY
     Route: 048
     Dates: start: 20110101, end: 20110401
  2. FLUOROURACIL [Concomitant]
  3. LEUCOVORIN CALCIUM [Concomitant]
  4. GLEEVEC [Suspect]
     Indication: COLORECTAL CANCER

REACTIONS (4)
  - SEPTIC SHOCK [None]
  - SEPSIS [None]
  - CARDIOPULMONARY FAILURE [None]
  - PNEUMONIA [None]
